FAERS Safety Report 19855112 (Version 1)
Quarter: 2021Q3

REPORT INFORMATION
  Report Type: Spontaneous
  Country: US (occurrence: US)
  Receive Date: 20210918
  Receipt Date: 20210918
  Transmission Date: 20211014
  Serious: Yes (Other)
  Sender: FDA-Public Use
  Company Number: None

PATIENT
  Age: 53 Year
  Sex: Female
  Weight: 66.15 kg

DRUGS (8)
  1. AMBIEN [Concomitant]
     Active Substance: ZOLPIDEM TARTRATE
  2. GABAPENTIN. [Concomitant]
     Active Substance: GABAPENTIN
  3. VALTREX [Concomitant]
     Active Substance: VALACYCLOVIR HYDROCHLORIDE
  4. KETAMINE [Suspect]
     Active Substance: KETAMINE
     Indication: DEPRESSION
     Dates: start: 20180401, end: 20190407
  5. CENTRUM [Concomitant]
     Active Substance: VITAMINS
  6. SYNTHROID [Concomitant]
     Active Substance: LEVOTHYROXINE SODIUM
  7. VIIBRYD [Concomitant]
     Active Substance: VILAZODONE HYDROCHLORIDE
  8. TOPIMAX [Concomitant]

REACTIONS (8)
  - Weight decreased [None]
  - Parosmia [None]
  - Taste disorder [None]
  - Cholecystectomy [None]
  - Dysgeusia [None]
  - Ear congestion [None]
  - Nausea [None]
  - Tic [None]

NARRATIVE: CASE EVENT DATE: 20190407
